FAERS Safety Report 20361174 (Version 1)
Quarter: 2022Q1

REPORT INFORMATION
  Report Type: Spontaneous
  Country: US (occurrence: None)
  Receive Date: 20220120
  Receipt Date: 20220120
  Transmission Date: 20220423
  Serious: Yes (Other)
  Sender: FDA-Public Use
  Company Number: None

PATIENT
  Age: 74 Year
  Sex: Female
  Weight: 65.25 kg

DRUGS (2)
  1. LOSARTAN [Suspect]
     Active Substance: LOSARTAN
     Indication: Hypertension
     Dosage: FREQUENCY : DAILY;?
     Route: 048
  2. NADOLOL TAB 40MG [Concomitant]
     Dates: start: 20190331

REACTIONS (2)
  - Therapeutic product effect decreased [None]
  - Blood pressure increased [None]

NARRATIVE: CASE EVENT DATE: 20220116
